FAERS Safety Report 9364871 (Version 2)
Quarter: 2013Q4

REPORT INFORMATION
  Report Type: Spontaneous
  Country: US (occurrence: US)
  Receive Date: 20130624
  Receipt Date: 20131127
  Transmission Date: 20140711
  Serious: Yes (Death, Hospitalization)
  Sender: FDA-Public Use
  Company Number: US-B.I. PHARMACEUTICALS,INC./RIDGEFIELD-2013-BI-17545BP

PATIENT
  Age: 75 Year
  Sex: Male
  Weight: 79.38 kg

DRUGS (3)
  1. PRADAXA [Suspect]
     Indication: ATRIAL FIBRILLATION
     Dates: start: 20111027, end: 20121008
  2. CARDIZEM [Concomitant]
  3. ALLERGY MEDICATIONS [Concomitant]

REACTIONS (1)
  - Cerebellar haemorrhage [Fatal]
